FAERS Safety Report 13855212 (Version 1)
Quarter: 2017Q3

REPORT INFORMATION
  Report Type: Spontaneous
  Country: IN (occurrence: IN)
  Receive Date: 20170810
  Receipt Date: 20170810
  Transmission Date: 20171127
  Serious: Yes (Other)
  Sender: FDA-Public Use
  Company Number: IN-SA-2017SA144134

PATIENT
  Sex: Male

DRUGS (1)
  1. DULCOFLEX [Suspect]
     Active Substance: BISACODYL
     Route: 065

REACTIONS (1)
  - Loss of consciousness [Unknown]
